FAERS Safety Report 19904430 (Version 1)
Quarter: 2021Q4

REPORT INFORMATION
  Report Type: Spontaneous
  Country: US (occurrence: US)
  Receive Date: 20211001
  Receipt Date: 20211001
  Transmission Date: 20220303
  Serious: Yes (Other)
  Sender: FDA-Public Use
  Company Number: US-GLAXOSMITHKLINE-US2021GSK204948

PATIENT
  Sex: Male

DRUGS (6)
  1. RANITIDINE HYDROCHLORIDE [Suspect]
     Active Substance: RANITIDINE HYDROCHLORIDE
     Indication: Dyspepsia
     Dosage: 150 MG, BID
     Route: 065
     Dates: start: 201001, end: 201301
  2. RANITIDINE HYDROCHLORIDE [Suspect]
     Active Substance: RANITIDINE HYDROCHLORIDE
     Indication: Dyspepsia
     Dosage: 150 MG, BID
     Route: 065
     Dates: start: 201001, end: 201301
  3. RANITIDINE [Suspect]
     Active Substance: RANITIDINE
     Indication: Dyspepsia
     Dosage: 150 MG, BID
     Route: 065
     Dates: start: 201001, end: 201301
  4. RANITIDINE [Suspect]
     Active Substance: RANITIDINE
     Indication: Dyspepsia
     Dosage: 150 MG, BID
     Route: 065
     Dates: start: 201001, end: 201301
  5. RANITIDINE [Suspect]
     Active Substance: RANITIDINE
     Dosage: 75 MG, BID
     Route: 065
     Dates: start: 2010, end: 2013
  6. ZANTAC [Suspect]
     Active Substance: RANITIDINE HYDROCHLORIDE
     Indication: Dyspepsia
     Dosage: 75 MG, BID
     Route: 065
     Dates: start: 2010, end: 2013

REACTIONS (1)
  - Colorectal cancer [Unknown]
